FAERS Safety Report 25146073 (Version 1)
Quarter: 2025Q2

REPORT INFORMATION
  Report Type: Spontaneous
  Country: FR (occurrence: FR)
  Receive Date: 20250401
  Receipt Date: 20250401
  Transmission Date: 20250716
  Serious: Yes (Other)
  Sender: IDORSIA PHARMACEUTICALS
  Company Number: None

PATIENT
  Age: 28 Year
  Sex: Female
  Weight: 69 kg

DRUGS (5)
  1. QUVIVIQ [Suspect]
     Active Substance: DARIDOREXANT
     Indication: Sleep disorder
     Dosage: 25 MG, QD
     Route: 048
     Dates: start: 20250201, end: 20250306
  2. OZEMPIC [Concomitant]
     Active Substance: SEMAGLUTIDE
  3. DROSPIRENONE [Concomitant]
     Active Substance: DROSPIRENONE
  4. PAROXETINE [Concomitant]
     Active Substance: PAROXETINE
  5. RABEPRAZOLE [Concomitant]
     Active Substance: RABEPRAZOLE

REACTIONS (3)
  - Condition aggravated [Recovering/Resolving]
  - Depression [Recovering/Resolving]
  - Anxiety [Recovering/Resolving]

NARRATIVE: CASE EVENT DATE: 20250221
